FAERS Safety Report 12609887 (Version 2)
Quarter: 2016Q3

REPORT INFORMATION
  Report Type: Spontaneous
  Country: CA (occurrence: CA)
  Receive Date: 20160801
  Receipt Date: 20160919
  Transmission Date: 20161109
  Serious: Yes (Other)
  Sender: FDA-Public Use
  Company Number: CA-TEVA-662189ACC

PATIENT
  Sex: Female

DRUGS (5)
  1. VITAMIN SUPPLEMENT [Concomitant]
     Active Substance: VITAMINS
     Dates: start: 201510, end: 20160410
  2. ZYPREXA [Suspect]
     Active Substance: OLANZAPINE
     Route: 065
  3. TEVA-OLANZAPINE [Suspect]
     Active Substance: OLANZAPINE
     Indication: PRODUCT USED FOR UNKNOWN INDICATION
     Dosage: 2.5 MILLIGRAM DAILY; PATIENT DECREASING THE DOSE BY 1/8
     Dates: end: 20160521
  4. VITAMIN SUPPLEMENT [Concomitant]
     Active Substance: VITAMINS
     Dates: start: 201510, end: 20160410
  5. TEVA-TELMISARTAN [Suspect]
     Active Substance: TELMISARTAN
     Indication: BLOOD PRESSURE MEASUREMENT
     Route: 065

REACTIONS (17)
  - Weight increased [Recovered/Resolved]
  - Wrong technique in product usage process [Unknown]
  - Product coating issue [Unknown]
  - Obstructive defaecation [Unknown]
  - Drug effect decreased [Unknown]
  - Intentional product use issue [Unknown]
  - Hypertension [Recovered/Resolved]
  - Drug ineffective [Unknown]
  - Faecal disimpaction [Unknown]
  - Constipation [Unknown]
  - Product size issue [Unknown]
  - Product physical consistency issue [Unknown]
  - Gastrooesophageal reflux disease [Unknown]
  - Blood cholesterol abnormal [Recovered/Resolved]
  - Product quality issue [Unknown]
  - Eating disorder [Recovered/Resolved]
  - Incorrect product storage [Unknown]

NARRATIVE: CASE EVENT DATE: 201511
